FAERS Safety Report 7468694-4 (Version None)
Quarter: 2011Q2

REPORT INFORMATION
  Report Type: 
  Country: None (occurrence: None)
  Receive Date: 20110510
  Receipt Date: 20110428
  Transmission Date: 20111010
  Serious: No
  Sender: FDA-Public Use
  Company Number: US-BIOGENIDEC-2010BI039779

PATIENT
  Age: 54 Year
  Sex: Female

DRUGS (1)
  1. TYSABRI [Suspect]
     Indication: MULTIPLE SCLEROSIS
     Route: 042
     Dates: start: 20100621

REACTIONS (9)
  - BRONCHITIS [None]
  - CONTUSION [None]
  - WEIGHT DECREASED [None]
  - VISION BLURRED [None]
  - GINGIVAL BLEEDING [None]
  - ABDOMINAL DISCOMFORT [None]
  - BACK PAIN [None]
  - PAIN IN EXTREMITY [None]
  - DIPLOPIA [None]
